FAERS Safety Report 8230078-9 (Version None)
Quarter: 2012Q1

REPORT INFORMATION
  Report Type: 
  Country: None (occurrence: None)
  Receive Date: 20120323
  Receipt Date: 20120315
  Transmission Date: 20120608
  Serious: No
  Sender: FDA-Public Use
  Company Number: US-PFIZER INC-2012064917

PATIENT
  Sex: Female
  Weight: 68.481 kg

DRUGS (3)
  1. CELEBREX [Suspect]
     Indication: ARTHRITIS
     Dosage: 200 MG, AS NEEDED
     Route: 048
  2. PRILOSEC [Concomitant]
     Indication: GASTRIC DISORDER
     Dosage: 20 MG, AS NEEDED
  3. CELEBREX [Suspect]
     Indication: SPINAL COLUMN STENOSIS

REACTIONS (1)
  - DRUG INEFFECTIVE [None]
